FAERS Safety Report 5621204-6 (Version None)
Quarter: 2008Q1

REPORT INFORMATION
  Report Type: 
  Country: None (occurrence: None)
  Receive Date: 20080114
  Receipt Date: 20061211
  Transmission Date: 20080703
  Serious: Yes (Hospitalization)
  Sender: FDA-Public Use
  Company Number: A03200607457

PATIENT
  Age: 84 Year
  Sex: Male
  Weight: 83.9 kg

DRUGS (11)
  1. PLAVIX [Suspect]
     Indication: ANTICOAGULANT THERAPY
     Dosage: 75 MG QD - ORAL
     Route: 048
     Dates: end: 20060101
  2. ACETYLSALICYLIC ACID SRT [Concomitant]
  3. LOVASTATIN [Concomitant]
  4. VERAPAMIL [Concomitant]
  5. OMEPRAZOLE [Concomitant]
  6. TAMSULOSIN HCL [Concomitant]
  7. VITAMIN CAP [Concomitant]
  8. MULTIMINERALS [Concomitant]
  9. ASCORBIC ACID [Concomitant]
  10. PARACETAMOL [Concomitant]
  11. GLUCOSAMINE [Concomitant]

REACTIONS (4)
  - DIZZINESS [None]
  - SKIN DISCOLOURATION [None]
  - TRANSIENT ISCHAEMIC ATTACK [None]
  - VOMITING [None]
